FAERS Safety Report 12512318 (Version 2)
Quarter: 2016Q3

REPORT INFORMATION
  Report Type: Spontaneous
  Country: US (occurrence: US)
  Receive Date: 20160630
  Receipt Date: 20160919
  Transmission Date: 20161109
  Serious: Yes (Death, Hospitalization)
  Sender: FDA-Public Use
  Company Number: US-JNJFOC-20160522752

PATIENT
  Age: 82 Year
  Sex: Male
  Weight: 89.6 kg

DRUGS (7)
  1. XARELTO [Suspect]
     Active Substance: RIVAROXABAN
     Indication: KNEE ARTHROPLASTY
     Dosage: 15 MG TWICE A DAY FOR 3 WEEKS AND 20 MG DAILY.
     Route: 048
     Dates: start: 20140401, end: 20141007
  2. XARELTO [Suspect]
     Active Substance: RIVAROXABAN
     Indication: CEREBROVASCULAR ACCIDENT PROPHYLAXIS
     Dosage: 15 MG TWICE A DAY FOR 3 WEEKS AND 20 MG DAILY.
     Route: 048
     Dates: start: 20140401, end: 20141007
  3. XARELTO [Suspect]
     Active Substance: RIVAROXABAN
     Indication: ATRIAL FLUTTER
     Dosage: 15 MG TWICE A DAY FOR 3 WEEKS AND 20 MG DAILY.
     Route: 048
     Dates: start: 20140401, end: 20141007
  4. ASPIRIN. [Suspect]
     Active Substance: ASPIRIN
     Indication: PRODUCT USED FOR UNKNOWN INDICATION
     Route: 048
  5. XARELTO [Suspect]
     Active Substance: RIVAROXABAN
     Indication: ATRIAL FIBRILLATION
     Dosage: 15 MG TWICE A DAY FOR 3 WEEKS AND 20 MG DAILY.
     Route: 048
     Dates: start: 20140401, end: 20141007
  6. XARELTO [Suspect]
     Active Substance: RIVAROXABAN
     Indication: THROMBOSIS PROPHYLAXIS
     Dosage: 15 MG TWICE A DAY FOR 3 WEEKS AND 20 MG DAILY.
     Route: 048
     Dates: start: 20140401, end: 20141007
  7. XARELTO [Suspect]
     Active Substance: RIVAROXABAN
     Indication: PULMONARY EMBOLISM
     Dosage: 15 MG TWICE A DAY FOR 3 WEEKS AND 20 MG DAILY.
     Route: 048
     Dates: start: 20140401, end: 20141007

REACTIONS (2)
  - Subdural haematoma [Fatal]
  - Fall [Fatal]

NARRATIVE: CASE EVENT DATE: 20141007
